FAERS Safety Report 5286467-8 (Version None)
Quarter: 2007Q2

REPORT INFORMATION
  Report Type: 
  Country: None (occurrence: None)
  Receive Date: 20070404
  Receipt Date: 20070323
  Transmission Date: 20071010
  Serious: Yes (Hospitalization, Other)
  Sender: FDA-Public Use
  Company Number: HQWYE796227MAR07

PATIENT
  Age: 26 Year
  Sex: Female
  Weight: 68.1 kg

DRUGS (7)
  1. EFFEXOR [Suspect]
     Indication: DEPRESSION
     Dosage: OVERDOSE AMOUNT UNKNOWN
     Route: 048
     Dates: start: 20070223, end: 20070223
  2. OXYCONTIN [Suspect]
     Dosage: OVERDOSE AMOUNT UNKNOWN
     Route: 048
     Dates: start: 20070223, end: 20070223
  3. ETHANOL [Suspect]
     Dosage: ^SMALL AMOUNT OF BEER^
     Dates: start: 20070222, end: 20070222
  4. NEURONTIN [Concomitant]
     Dosage: UNKNOWN
  5. CODEINE [Concomitant]
     Dosage: UNKNOWN
  6. KADIAN [Suspect]
     Dosage: OVERDOSE AMOUNT UNKNOWN
     Route: 048
     Dates: start: 20070221, end: 20070222
  7. LUNESTA [Concomitant]
     Indication: INSOMNIA
     Dates: start: 20070201

REACTIONS (12)
  - CHILLS [None]
  - DEHYDRATION [None]
  - DEPRESSED MOOD [None]
  - FATIGUE [None]
  - HYPOVENTILATION [None]
  - HYPOXIA [None]
  - LETHARGY [None]
  - LOSS OF CONSCIOUSNESS [None]
  - OVERDOSE [None]
  - SINUS ARRHYTHMIA [None]
  - UNRESPONSIVE TO STIMULI [None]
  - VOMITING [None]
